FAERS Safety Report 11510644 (Version 1)
Quarter: 2015Q3

REPORT INFORMATION
  Report Type: Spontaneous
  Country: US (occurrence: US)
  Receive Date: 20150915
  Receipt Date: 20150915
  Transmission Date: 20151125
  Serious: No
  Sender: FDA-Public Use
  Company Number: US-JNJFOC-20150810030

PATIENT
  Age: 62 Year
  Sex: Female
  Weight: 62.6 kg

DRUGS (1)
  1. TYLENOL EXTRA STRENGTH [Suspect]
     Active Substance: ACETAMINOPHEN
     Indication: INFECTION
     Route: 048
     Dates: start: 20150812, end: 20150813

REACTIONS (2)
  - Incorrect dose administered [Unknown]
  - Product use issue [Unknown]
